FAERS Safety Report 4945423-7 (Version None)
Quarter: 2006Q1

REPORT INFORMATION
  Report Type: 
  Country: None (occurrence: None)
  Receive Date: 20060316
  Receipt Date: 20000308
  Transmission Date: 20060701
  Serious: Yes (Other)
  Sender: FDA-Public Use
  Company Number: US-GLAXOSMITHKLINE-A0589933B

PATIENT
  Age: 34 Year
  Sex: Female

DRUGS (4)
  1. LAMICTAL [Suspect]
     Indication: EPILEPSY
     Dates: start: 19960101
  2. MACROBID [Concomitant]
     Indication: URINARY TRACT INFECTION
  3. PRENATAL VITAMINS [Concomitant]
  4. FOLIC ACID [Concomitant]

REACTIONS (3)
  - ABORTION SPONTANEOUS [None]
  - NORMAL DELIVERY [None]
  - VAGINAL CYST [None]
